FAERS Safety Report 25893661 (Version 1)
Quarter: 2025Q4

REPORT INFORMATION
  Report Type: Spontaneous
  Country: EU (occurrence: EU)
  Receive Date: 20251008
  Receipt Date: 20251008
  Transmission Date: 20260118
  Serious: Yes (Hospitalization, Other)
  Sender: CELLTRION
  Company Number: EU-ROCHE-3551358

PATIENT

DRUGS (15)
  1. RITUXIMAB [Suspect]
     Active Substance: RITUXIMAB
     Indication: Antiviral prophylaxis
     Dosage: ON DAY +5
     Route: 065
  2. RITUXIMAB [Suspect]
     Active Substance: RITUXIMAB
     Indication: Post transplant lymphoproliferative disorder
  3. RITUXIMAB [Suspect]
     Active Substance: RITUXIMAB
     Indication: Prophylaxis
  4. MYCOPHENOLATE MOFETIL [Suspect]
     Active Substance: MYCOPHENOLATE MOFETIL
     Indication: Prophylaxis against graft versus host disease
     Dosage: SINCE DAY +1
     Route: 065
  5. BUSULFAN [Suspect]
     Active Substance: BUSULFAN
     Indication: Immunosuppression
     Dosage: 3.2 MG/KG, QD, DAYS -7 TO -4 / 3.2 MG/KG/DAY, DAYS -7 TO -4
     Route: 065
  6. BUSULFAN [Suspect]
     Active Substance: BUSULFAN
     Indication: Allogenic stem cell transplantation
  7. FLUDARABINE [Suspect]
     Active Substance: FLUDARABINE PHOSPHATE
     Indication: Immunosuppression
     Dosage: 30 MG/M2, QD, DAYS -7 TO -3 / 30 MG/M2/DAY, DAYS -7 TO -3
     Route: 065
  8. FLUDARABINE [Suspect]
     Active Substance: FLUDARABINE PHOSPHATE
     Indication: Allogenic stem cell transplantation
  9. THIOTEPA [Suspect]
     Active Substance: THIOTEPA
     Indication: Immunosuppression
     Dosage: 10 MG/KG, QD, DAY -2 / 10 MG/KG/DAY, DAY -2
     Route: 065
  10. THIOTEPA [Suspect]
     Active Substance: THIOTEPA
     Indication: Allogenic stem cell transplantation
  11. CYCLOPHOSPHAMIDE [Suspect]
     Active Substance: CYCLOPHOSPHAMIDE
     Indication: Prophylaxis against graft versus host disease
     Dosage: 50 MG/KG, QD, DAYS +3, +5 / 50 MG/KG/DAY, DAYS +3, +5
     Route: 065
  12. CYCLOSPORINE [Suspect]
     Active Substance: CYCLOSPORINE
     Indication: Prophylaxis against graft versus host disease
     Dosage: SINCE DAY +5
     Route: 065
  13. METHYLPREDNISOLONE [Suspect]
     Active Substance: METHYLPREDNISOLONE
     Indication: Immunosuppression
     Dosage: 2 MG/KG, QD
     Route: 065
  14. SIROLIMUS [Suspect]
     Active Substance: SIROLIMUS
     Indication: Immunosuppression
     Dosage: WITH LEVEL RANGE 4-6 NG/ML
     Route: 065
  15. FILGRASTIM [Concomitant]
     Active Substance: FILGRASTIM

REACTIONS (16)
  - Graft versus host disease [Recovered/Resolved]
  - Gastrointestinal inflammation [Unknown]
  - Acute graft versus host disease in skin [Recovered/Resolved]
  - Acute graft versus host disease in intestine [Recovered/Resolved]
  - Sepsis [Unknown]
  - Urinary tract infection [Recovered/Resolved]
  - Enterococcal infection [Unknown]
  - Bacterial infection [Unknown]
  - Pneumonia klebsiella [Unknown]
  - Klebsiella infection [Not Recovered/Not Resolved]
  - Klebsiella sepsis [Recovered/Resolved]
  - Klebsiella urinary tract infection [Unknown]
  - Gastrointestinal bacterial infection [Not Recovered/Not Resolved]
  - Pyrexia [Unknown]
  - Epididymitis [Unknown]
  - Intentional product use issue [Unknown]
